FAERS Safety Report 6760671-1 (Version None)
Quarter: 2010Q2

REPORT INFORMATION
  Report Type: 
  Country: None (occurrence: None)
  Receive Date: 20100608
  Receipt Date: 20100601
  Transmission Date: 20101027
  Serious: Yes (Hospitalization)
  Sender: FDA-Public Use
  Company Number: US-RB-005498-10

PATIENT
  Age: 30 Year
  Sex: Female

DRUGS (2)
  1. SUBOXONE [Suspect]
     Route: 060
     Dates: end: 20100501
  2. AMBIEN [Concomitant]
     Indication: SLEEP DISORDER
     Dosage: DOSING DETAILS UNKNOWN
     Route: 065

REACTIONS (6)
  - CHEST PAIN [None]
  - COUGH [None]
  - FATIGUE [None]
  - HANGOVER [None]
  - PNEUMONIA [None]
  - ROAD TRAFFIC ACCIDENT [None]
